FAERS Safety Report 15322518 (Version 1)
Quarter: 2018Q3

REPORT INFORMATION
  Report Type: Spontaneous
  Country: SE (occurrence: SE)
  Receive Date: 20180827
  Receipt Date: 20180827
  Transmission Date: 20181010
  Serious: Yes (Other)
  Sender: FDA-Public Use
  Company Number: PHHY2018SE083043

PATIENT
  Age: 30 Year
  Sex: Male

DRUGS (1)
  1. MYCOPHENOLATE MOFETIL SANDOZ [Suspect]
     Active Substance: MYCOPHENOLATE MOFETIL
     Indication: RENAL TRANSPLANT
     Dosage: 2000 MG, QD
     Route: 048
     Dates: start: 20180520, end: 20180529

REACTIONS (1)
  - VIth nerve disorder [Recovered/Resolved]

NARRATIVE: CASE EVENT DATE: 20180528
